FAERS Safety Report 23168091 (Version 1)
Quarter: 2023Q4

REPORT INFORMATION
  Report Type: Spontaneous
  Country: JP (occurrence: JP)
  Receive Date: 20231109
  Receipt Date: 20231109
  Transmission Date: 20240109
  Serious: Yes (Life-Threatening, Hospitalization, Other)
  Sender: FDA-Public Use
  Company Number: JP-TAKEDA-2023TJP001705

PATIENT
  Age: 55 Year
  Sex: Male
  Weight: 76.9 kg

DRUGS (7)
  1. VECTIBIX [Suspect]
     Active Substance: PANITUMUMAB
     Indication: Rectal cancer recurrent
     Dosage: 370 MILLIGRAM, Q2WK
     Route: 042
     Dates: start: 20220912, end: 20221226
  2. OXALIPLATIN [Suspect]
     Active Substance: OXALIPLATIN
     Indication: Rectal cancer recurrent
     Dosage: 160 MILLIGRAM, Q2WEEKS
     Route: 041
     Dates: start: 20220912, end: 20221226
  3. FLUOROURACIL [Suspect]
     Active Substance: FLUOROURACIL
     Indication: Rectal cancer recurrent
     Dosage: 750 MILLIGRAM, Q2WEEKS
     Route: 042
     Dates: start: 20220912, end: 20221226
  4. FLUOROURACIL [Suspect]
     Active Substance: FLUOROURACIL
     Dosage: 4500 MILLIGRAM, Q2WEEKS
     Route: 042
     Dates: start: 20220912, end: 20221226
  5. LEVOLEUCOVORIN CALCIUM [Suspect]
     Active Substance: LEVOLEUCOVORIN CALCIUM
     Indication: Rectal cancer recurrent
     Dosage: 375 MILLIGRAM, Q2WEEKS
     Route: 041
     Dates: start: 20220912, end: 20221226
  6. GRANISETRON HYDROCHLORIDE [Concomitant]
     Active Substance: GRANISETRON HYDROCHLORIDE
     Indication: Prophylaxis
     Dosage: 3 MILLIGRAM, Q2WEEKS
     Route: 042
     Dates: start: 20220912, end: 20221226
  7. DECADRON [Concomitant]
     Active Substance: DEXAMETHASONE
     Indication: Prophylaxis
     Dosage: 6.6 MILLIGRAM, Q2WEEKS
     Route: 041
     Dates: start: 20220912, end: 20221226

REACTIONS (2)
  - Skin disorder [Recovering/Resolving]
  - Interstitial lung disease [Recovering/Resolving]

NARRATIVE: CASE EVENT DATE: 20221017
